FAERS Safety Report 9548947 (Version 1)
Quarter: 2013Q3

REPORT INFORMATION
  Report Type: Spontaneous
  Country: US (occurrence: None)
  Receive Date: 20130923
  Receipt Date: 20130923
  Transmission Date: 20140515
  Serious: No
  Sender: FDA-Public Use
  Company Number: None

PATIENT
  Age: 86 Year
  Sex: Female
  Weight: 71.67 kg

DRUGS (1)
  1. PRIMIDONE [Suspect]
     Indication: TREMOR
     Dosage: 1/2 TAB ONCE DAILY TAKEN BY MOUTH
     Route: 048
     Dates: start: 20130911, end: 20130911

REACTIONS (2)
  - Disturbance in attention [None]
  - Balance disorder [None]
